FAERS Safety Report 7311633-7 (Version None)
Quarter: 2011Q1

REPORT INFORMATION
  Report Type: 
  Country: None (occurrence: None)
  Receive Date: 20110215
  Receipt Date: 20110215
  Transmission Date: 20110831
  Serious: Yes (Life-Threatening, Other)
  Sender: FDA-Public Use
  Company Number: None

PATIENT
  Sex: Male
  Weight: 75.7507 kg

DRUGS (1)
  1. METOPROLOL TARTRATE [Suspect]
     Indication: CARDIAC FAILURE
     Dosage: 25 MG 2 X DAY ORAL
     Route: 048
     Dates: start: 20100401, end: 20101201

REACTIONS (7)
  - PANIC ATTACK [None]
  - ANXIETY [None]
  - DIZZINESS [None]
  - OEDEMA PERIPHERAL [None]
  - DYSPNOEA [None]
  - FATIGUE [None]
  - HEART RATE IRREGULAR [None]
